FAERS Safety Report 14367321 (Version 1)
Quarter: 2018Q1

REPORT INFORMATION
  Report Type: Spontaneous
  Country: US (occurrence: US)
  Receive Date: 20180108
  Receipt Date: 20180108
  Transmission Date: 20180509
  Serious: Yes (Other)
  Sender: FDA-Public Use
  Company Number: None

PATIENT
  Age: 21 Year
  Sex: Male
  Weight: 51.8 kg

DRUGS (3)
  1. DEXAMETHASON [Concomitant]
     Active Substance: DEXAMETHASONE
  2. PALONSETRON [Concomitant]
  3. VARUBI [Suspect]
     Active Substance: ROLAPITANT
     Indication: VOMITING
     Dosage: ?          OTHER FREQUENCY:ONCE;?
     Route: 042
     Dates: start: 20180102, end: 20180102

REACTIONS (4)
  - Flushing [None]
  - Dyspnoea [None]
  - Hyperhidrosis [None]
  - Nausea [None]

NARRATIVE: CASE EVENT DATE: 20180102
